FAERS Safety Report 10642579 (Version 1)
Quarter: 2014Q4

REPORT INFORMATION
  Report Type: Spontaneous
  Country: US (occurrence: None)
  Receive Date: 20141208
  Receipt Date: 20141208
  Transmission Date: 20150529
  Serious: Yes (Other)
  Sender: FDA-Public Use
  Company Number: US-H14001-14-01618

PATIENT
  Age: 52 Year
  Sex: Male

DRUGS (2)
  1. INFUMORPH [Suspect]
     Active Substance: MORPHINE SULFATE
     Indication: POST LAMINECTOMY SYNDROME
     Route: 037
  2. INFUMORPH [Suspect]
     Active Substance: MORPHINE SULFATE
     Indication: PAIN
     Route: 037

REACTIONS (7)
  - Urinary retention [None]
  - Withdrawal syndrome [None]
  - Nausea [None]
  - Vomiting [None]
  - Pain [None]
  - Drug dose omission [None]
  - Chest pain [None]

NARRATIVE: CASE EVENT DATE: 2014
